FAERS Safety Report 5120893-2 (Version None)
Quarter: 2006Q4

REPORT INFORMATION
  Report Type: 
  Country: None (occurrence: None)
  Receive Date: 20061005
  Receipt Date: 20060922
  Transmission Date: 20070319
  Serious: Yes (Other)
  Sender: FDA-Public Use
  Company Number: PHBS2006JP14820

PATIENT

DRUGS (1)
  1. VOLTAREN [Suspect]

REACTIONS (2)
  - COLLAGEN DISORDER [None]
  - PYREXIA [None]
